FAERS Safety Report 6342066-8 (Version None)
Quarter: 2009Q3

REPORT INFORMATION
  Report Type: 
  Country: None (occurrence: None)
  Receive Date: 20090903
  Receipt Date: 20090819
  Transmission Date: 20100115
  Serious: Yes (Disabling)
  Sender: FDA-Public Use
  Company Number: AUR-APL-2009-00466

PATIENT
  Age: 65 Year
  Sex: Female

DRUGS (14)
  1. SIMVASTATIN [Suspect]
  2. SITAGLIPTIN [Suspect]
     Indication: DIABETES MELLITUS
     Dosage: 100 MG- ORAL
     Route: 048
     Dates: start: 20080812, end: 20090518
  3. ASPIRIN [Concomitant]
  4. BENDROFLUMETHIAZIDE [Concomitant]
  5. BUPRENORPHINE HCL [Concomitant]
  6. DIPYRIDAMOLE [Concomitant]
  7. ENALAPRIL MALEATE [Concomitant]
  8. LACRI-LUBE [Concomitant]
  9. LANTUS [Concomitant]
  10. METFORMIN HCL [Concomitant]
  11. OXYTETRACYCLINE [Concomitant]
  12. PARACETAMOL [Concomitant]
  13. PRAVASTATIN [Concomitant]
  14. SNO TEARS 1.4% [Concomitant]

REACTIONS (7)
  - ARTHRALGIA [None]
  - DIABETIC RETINOPATHY [None]
  - MEIBOMIANITIS [None]
  - MYALGIA [None]
  - NAUSEA [None]
  - RETINAL HAEMORRHAGE [None]
  - VISION BLURRED [None]
